FAERS Safety Report 4427861-4 (Version None)
Quarter: 2004Q3

REPORT INFORMATION
  Report Type: 
  Country: None (occurrence: None)
  Receive Date: 20040812
  Receipt Date: 20040729
  Transmission Date: 20050211
  Serious: Yes (Hospitalization)
  Sender: FDA-Public Use
  Company Number: 202240

PATIENT
  Age: 63 Year
  Sex: Female
  Weight: 70.7611 kg

DRUGS (2)
  1. AVONEX [Suspect]
     Indication: MULTIPLE SCLEROSIS
     Dosage: 30 MCG QW IM
     Route: 030
     Dates: start: 20010101
  2. NEURONTIN [Concomitant]

REACTIONS (14)
  - ARTHRITIS [None]
  - BALANCE DISORDER [None]
  - BLADDER DISORDER [None]
  - CONDITION AGGRAVATED [None]
  - DEPRESSION [None]
  - FALL [None]
  - HYPOTHYROIDISM [None]
  - JOINT LIGAMENT RUPTURE [None]
  - MEMORY IMPAIRMENT [None]
  - MULTIPLE SCLEROSIS [None]
  - OSTEOARTHRITIS [None]
  - RHEUMATOID ARTHRITIS [None]
  - SINUS DISORDER [None]
  - WEIGHT DECREASED [None]
